FAERS Safety Report 25786040 (Version 1)
Quarter: 2025Q3

REPORT INFORMATION
  Report Type: Spontaneous
  Country: US (occurrence: US)
  Receive Date: 20250910
  Receipt Date: 20250910
  Transmission Date: 20251021
  Serious: Yes (Hospitalization)
  Sender: SANOFI AVENTIS
  Company Number: US-SA-2025SA267430

PATIENT
  Age: 64 Year
  Sex: Female

DRUGS (2)
  1. REZUROCK [Suspect]
     Active Substance: BELUMOSUDIL
     Indication: Chronic graft versus host disease
     Dosage: 200 MG, BID
     Route: 048
  2. JAKAFI [Concomitant]
     Active Substance: RUXOLITINIB

REACTIONS (4)
  - Chills [Unknown]
  - Dizziness [Unknown]
  - Fatigue [Unknown]
  - Inappropriate schedule of product administration [Unknown]
